FAERS Safety Report 18277909 (Version 1)
Quarter: 2020Q3

REPORT INFORMATION
  Report Type: Spontaneous
  Country: FR (occurrence: FR)
  Receive Date: 20200917
  Receipt Date: 20200917
  Transmission Date: 20201103
  Serious: Yes (Life-Threatening, Hospitalization)
  Sender: FDA-Public Use
  Company Number: FR-JNJFOC-20200903406

PATIENT
  Age: 71 Year
  Sex: Female

DRUGS (1)
  1. DUROGESIC [Suspect]
     Active Substance: FENTANYL
     Indication: PAIN
     Route: 062
     Dates: start: 202008, end: 20200815

REACTIONS (4)
  - Pneumonia aspiration [Recovering/Resolving]
  - Bradycardia [Recovered/Resolved]
  - Altered state of consciousness [Recovered/Resolved]
  - Acute coronary syndrome [Recovering/Resolving]

NARRATIVE: CASE EVENT DATE: 20200815
